FAERS Safety Report 21650377 (Version 1)
Quarter: 2022Q4

REPORT INFORMATION
  Report Type: Spontaneous
  Country: US (occurrence: None)
  Receive Date: 20221124
  Receipt Date: 20221124
  Transmission Date: 20230112
  Serious: No
  Sender: FDA-Public Use
  Company Number: None

PATIENT
  Age: 34 Year
  Sex: Male
  Weight: 87.75 kg

DRUGS (1)
  1. CREST 3D WHITE RADIANT MINT [Suspect]
     Active Substance: SODIUM FLUORIDE
     Indication: Dental care
     Dosage: OTHER QUANTITY : 1 TOOTHPASTE USES?OTHER ROUTE : IT^S TOOTHPASTE?
     Route: 050
     Dates: start: 20221113, end: 20221116

REACTIONS (5)
  - Burning sensation [None]
  - Pain [None]
  - Tongue disorder [None]
  - Gingival pain [None]
  - Product formulation issue [None]

NARRATIVE: CASE EVENT DATE: 20221113
